FAERS Safety Report 20682329 (Version 1)
Quarter: 2022Q2

REPORT INFORMATION
  Report Type: Spontaneous
  Country: FR (occurrence: FR)
  Receive Date: 20220407
  Receipt Date: 20220407
  Transmission Date: 20220721
  Serious: Yes (Other)
  Sender: FDA-Public Use
  Company Number: None

PATIENT
  Age: 31 Year
  Sex: Female
  Weight: 83 kg

DRUGS (5)
  1. FLUOXETINE HYDROCHLORIDE [Suspect]
     Active Substance: FLUOXETINE HYDROCHLORIDE
     Dosage: 6 TABLETS, 20MG, DURATION 1DAYS
     Route: 048
     Dates: start: 20220112, end: 20220112
  2. OXAZEPAM [Suspect]
     Active Substance: OXAZEPAM
     Dosage: 15 TABLETS, 10MG, 1DAYS
     Route: 048
     Dates: start: 20220112, end: 20220112
  3. ALCOHOL [Suspect]
     Active Substance: ALCOHOL
     Dosage: 1 LITER OF BEER, 1LITER, DURATION 1DAYS
     Route: 048
     Dates: start: 20220112, end: 20220112
  4. PRAZEPAM [Suspect]
     Active Substance: PRAZEPAM
     Dosage: 6 TABLETS, 10MG, DURATION 1DAYS
     Route: 048
     Dates: start: 20220112, end: 20220112
  5. NEURONTIN [Suspect]
     Active Substance: GABAPENTIN
     Dosage: 12 TABLETS, 100MG, DURATION 1DAYS
     Route: 048
     Dates: start: 20220112, end: 20220112

REACTIONS (2)
  - Drug abuse [Recovered/Resolved]
  - Poisoning deliberate [Recovered/Resolved]

NARRATIVE: CASE EVENT DATE: 20220112
